FAERS Safety Report 16414651 (Version 2)
Quarter: 2019Q2

REPORT INFORMATION
  Report Type: Report from Study
  Country: US (occurrence: US)
  Receive Date: 20190611
  Receipt Date: 20190627
  Transmission Date: 20190711
  Serious: Yes (Hospitalization, Other)
  Sender: FDA-Public Use
  Company Number: US-GILEAD-2019-0409771

PATIENT
  Age: 60 Year
  Sex: Male
  Weight: 102.9 kg

DRUGS (22)
  1. SERTRALINE [Concomitant]
     Active Substance: SERTRALINE HYDROCHLORIDE
  2. DIGOXIN. [Concomitant]
     Active Substance: DIGOXIN
  3. INSULIN DETEMIR [Concomitant]
     Active Substance: INSULIN DETEMIR
  4. METOPROLOL SUCCINATE. [Concomitant]
     Active Substance: METOPROLOL SUCCINATE
  5. AMIODARONE [Concomitant]
     Active Substance: AMIODARONE
  6. SENNOSIDES. [Concomitant]
     Active Substance: SENNOSIDES
  7. AMBRISENTAN [Suspect]
     Active Substance: AMBRISENTAN
     Indication: PULMONARY HYPERTENSION
     Dosage: 10 MG, QD
     Route: 048
  8. MILRINONE [Concomitant]
     Active Substance: MILRINONE
     Dosage: 0.25 UG/KG
  9. MIRALAX [Concomitant]
     Active Substance: POLYETHYLENE GLYCOL 3350
  10. MILRINONE [Concomitant]
     Active Substance: MILRINONE
     Dosage: 0.375 UG/KG
  11. TEMAZEPAM. [Concomitant]
     Active Substance: TEMAZEPAM
  12. BETAMETHASONE DIPROPIONATE AUGMENTED [Concomitant]
     Active Substance: BETAMETHASONE DIPROPIONATE
  13. ONDANSETRON [Concomitant]
     Active Substance: ONDANSETRON
  14. MILRINONE [Concomitant]
     Active Substance: MILRINONE
     Dosage: 0.125 UG/KG, Q1MINUTE
  15. ATORVASTATIN [Concomitant]
     Active Substance: ATORVASTATIN
  16. TRIAMCINOLONE ACETONIDE. [Concomitant]
     Active Substance: TRIAMCINOLONE ACETONIDE
  17. MECLIZINE HCL [Concomitant]
     Active Substance: MECLIZINE HYDROCHLORIDE
  18. DULAGLUTIDE. [Concomitant]
     Active Substance: DULAGLUTIDE
  19. MEXILETINE [Concomitant]
     Active Substance: MEXILETINE
  20. PANTOPRAZOLE [Concomitant]
     Active Substance: PANTOPRAZOLE
  21. TRAMADOL. [Concomitant]
     Active Substance: TRAMADOL
  22. WARFARIN [Concomitant]
     Active Substance: WARFARIN

REACTIONS (2)
  - Cardiac failure acute [Unknown]
  - Renal disorder [Unknown]

NARRATIVE: CASE EVENT DATE: 20190606
